FAERS Safety Report 9558816 (Version 1)
Quarter: 2013Q3

REPORT INFORMATION
  Report Type: Spontaneous
  Country: US (occurrence: US)
  Receive Date: 20130926
  Receipt Date: 20130926
  Transmission Date: 20140515
  Serious: Yes (Hospitalization, Other)
  Sender: FDA-Public Use
  Company Number: US-ELI_LILLY_AND_COMPANY-US201309008029

PATIENT
  Age: 50 Year
  Sex: Female
  Weight: 112.93 kg

DRUGS (1)
  1. HUMALOG LISPRO [Suspect]

REACTIONS (5)
  - Road traffic accident [Recovered/Resolved]
  - Blood glucose decreased [Recovered/Resolved]
  - Accident [Unknown]
  - Blood glucose decreased [Unknown]
  - Hypoglycaemia unawareness [Unknown]
